FAERS Safety Report 7070513-5 (Version None)
Quarter: 2010Q4

REPORT INFORMATION
  Report Type: 
  Country: None (occurrence: None)
  Receive Date: 20101027
  Receipt Date: 20101027
  Transmission Date: 20110411
  Serious: Yes (Other)
  Sender: FDA-Public Use
  Company Number: None

PATIENT
  Age: 52 Year
  Sex: Male
  Weight: 140.6151 kg

DRUGS (2)
  1. FLUOXETINE HCL [Suspect]
     Indication: ANXIETY
     Dosage: 40 MG DAILY PO
     Route: 048
     Dates: start: 20100923, end: 20101015
  2. FLUOXETINE HCL [Suspect]
     Indication: DEPRESSION
     Dosage: 40 MG DAILY PO
     Route: 048
     Dates: start: 20100923, end: 20101015

REACTIONS (3)
  - DRUG INEFFECTIVE [None]
  - DRUG WITHDRAWAL SYNDROME [None]
  - PRODUCT SUBSTITUTION ISSUE [None]
